FAERS Safety Report 17963121 (Version 1)
Quarter: 2020Q2

REPORT INFORMATION
  Report Type: Report from Study
  Country: None (occurrence: US)
  Receive Date: 20200630
  Receipt Date: 20200630
  Transmission Date: 20200714
  Serious: Yes (Other)
  Sender: FDA-Public Use
  Company Number: US-BIOVITRUM-2020US1380

PATIENT
  Age: 5 Year
  Sex: Male

DRUGS (1)
  1. KINERET [Suspect]
     Active Substance: ANAKINRA
     Indication: FAMILIAL AMYLOIDOSIS
     Route: 058
     Dates: start: 20190423

REACTIONS (4)
  - Pancreatitis [Unknown]
  - Off label use [Unknown]
  - Influenza [Unknown]
  - Gastric pH decreased [Unknown]

NARRATIVE: CASE EVENT DATE: 20190423
